FAERS Safety Report 14909066 (Version 1)
Quarter: 2018Q2

REPORT INFORMATION
  Report Type: Spontaneous
  Country: US (occurrence: US)
  Receive Date: 20180430
  Receipt Date: 20180430
  Transmission Date: 20180711
  Serious: Yes (Other)
  Sender: FDA-Public Use
  Company Number: None

PATIENT
  Age: 87 Year
  Sex: Female
  Weight: 45 kg

DRUGS (1)
  1. CLONIDINE HCL TD PATCH WEEKLY 0.3 MG/24H [Suspect]
     Active Substance: CLONIDINE
     Indication: HYPERTENSION
     Dosage: ?          OTHER FREQUENCY:1 PATCH WEEKLY;?
     Route: 062
     Dates: start: 20180401, end: 20180430

REACTIONS (7)
  - Pruritus [None]
  - Blister [None]
  - Skin reaction [None]
  - Insomnia [None]
  - Pain [None]
  - Product adhesion issue [None]
  - Product substitution issue [None]

NARRATIVE: CASE EVENT DATE: 20180430
